FAERS Safety Report 5146764-3 (Version None)
Quarter: 2006Q4

REPORT INFORMATION
  Report Type: 
  Country: None (occurrence: None)
  Receive Date: 20061107
  Receipt Date: 20061107
  Transmission Date: 20070319
  Serious: No
  Sender: FDA-Public Use
  Company Number: None

PATIENT
  Age: 53 Year
  Sex: Female
  Weight: 99.7913 kg

DRUGS (2)
  1. GENTAMICIN [Suspect]
     Indication: APPENDICITIS PERFORATED
     Dosage: DRIP IV
     Route: 042
     Dates: start: 20000627, end: 20000629
  2. NEOMYCIN [Suspect]
     Indication: LIVER TRANSPLANT
     Dosage: 2 DAILY

REACTIONS (4)
  - BALANCE DISORDER [None]
  - DRUG TOXICITY [None]
  - FALL [None]
  - HYPOACUSIS [None]
